FAERS Safety Report 8592016-9 (Version None)
Quarter: 2012Q3

REPORT INFORMATION
  Report Type: 
  Country: None (occurrence: None)
  Receive Date: 20120814
  Receipt Date: 20120810
  Transmission Date: 20120928
  Serious: Yes (Hospitalization)
  Sender: FDA-Public Use
  Company Number: IT-BRISTOL-MYERS SQUIBB COMPANY-16850281

PATIENT
  Age: 78 Year
  Sex: Male

DRUGS (6)
  1. IRBESARTAN [Suspect]
     Indication: HYPERTENSION
     Dosage: INTERRUPTED ON 27JUN12
     Route: 048
     Dates: start: 20110628
  2. TAMSULOSIN HYDROCHLORIDE [Suspect]
     Dosage: HARD CAPS MODIFID RELEASE
     Route: 048
     Dates: start: 20110628
  3. RABEPRAZOLE SODIUM [Concomitant]
     Dosage: GASTRORESISTANT TABLETS
  4. MAGNESIUM HYDROXIDE TAB [Concomitant]
     Dosage: TABS
  5. LASIX [Suspect]
     Indication: RENAL FAILURE CHRONIC
     Dosage: 1 DF= 1 UNIT. FORM: 25MG TABS
     Route: 048
     Dates: start: 20110628
  6. ENALAPRIL MALEATE [Suspect]
     Indication: HYPERTENSION
     Dosage: 1 DF= 1 UNIT. FORM: TABS 5MG
     Route: 048
     Dates: start: 20110628

REACTIONS (3)
  - TACHYCARDIA [None]
  - ORTHOSTATIC HYPOTENSION [None]
  - PRESYNCOPE [None]
